FAERS Safety Report 25787077 (Version 1)
Quarter: 2025Q3

REPORT INFORMATION
  Report Type: Spontaneous
  Country: US (occurrence: None)
  Receive Date: 20250910
  Receipt Date: 20250910
  Transmission Date: 20251020
  Serious: Yes (Disabling, Other)
  Sender: FDA-CTU
  Company Number: None

PATIENT
  Age: 53 Year
  Sex: Female
  Weight: 65.25 kg

DRUGS (4)
  1. NITROFURANTOIN MONOHYDRATE [Suspect]
     Active Substance: NITROFURANTOIN MONOHYDRATE
     Indication: Urinary tract infection
     Dosage: FREQUENCY : TWICE A DAY;?
     Route: 015
     Dates: start: 2025, end: 20250613
  2. GABAPENTIN [Concomitant]
     Active Substance: GABAPENTIN
     Dates: start: 2025
  3. FUROSEMIDE [Concomitant]
     Active Substance: FUROSEMIDE
     Dates: start: 2025
  4. Physical Therapy [Concomitant]
     Dates: start: 2025

REACTIONS (9)
  - Neuropathy peripheral [None]
  - Lymphoedema [None]
  - Hypoaesthesia [None]
  - Hypoaesthesia oral [None]
  - Paraesthesia oral [None]
  - Paraesthesia [None]
  - Pelvic floor dysfunction [None]
  - Haemorrhage [None]
  - Near death experience [None]

NARRATIVE: CASE EVENT DATE: 20250601
